FAERS Safety Report 5627872-7 (Version None)
Quarter: 2008Q1

REPORT INFORMATION
  Report Type: 
  Country: None (occurrence: None)
  Receive Date: 20080214
  Receipt Date: 20080214
  Transmission Date: 20080703
  Serious: Yes (Hospitalization)
  Sender: FDA-Public Use
  Company Number: None

PATIENT
  Sex: Male
  Weight: 91 kg

DRUGS (2)
  1. TEMOZOLOMIDE [Suspect]
     Dosage: 6665 MG
  2. DEXAMETHASONE TAPER [Concomitant]

REACTIONS (6)
  - HYPERGLYCAEMIA [None]
  - LOBAR PNEUMONIA [None]
  - NAUSEA [None]
  - PLEURAL EFFUSION [None]
  - THROMBOCYTOPENIA [None]
  - VOMITING [None]
